FAERS Safety Report 15309095 (Version 1)
Quarter: 2018Q3

REPORT INFORMATION
  Report Type: Spontaneous
  Country: US (occurrence: US)
  Receive Date: 20180823
  Receipt Date: 20180823
  Transmission Date: 20181010
  Serious: No
  Sender: FDA-Public Use
  Company Number: US-CIPLA LTD.-2018US14508

PATIENT

DRUGS (2)
  1. ALENDRONATE [Suspect]
     Active Substance: ALENDRONATE SODIUM
     Indication: OSTEOPOROSIS
     Dosage: 70 MG, ONCE IN A WEEK
     Route: 048
  2. TOPAMAX [Concomitant]
     Active Substance: TOPIRAMATE
     Indication: PRODUCT USED FOR UNKNOWN INDICATION
     Dosage: UNKNOWN
     Route: 065

REACTIONS (8)
  - Dental caries [Unknown]
  - Weight bearing difficulty [Recovering/Resolving]
  - Gingival injury [Not Recovered/Not Resolved]
  - Tooth disorder [Unknown]
  - Ear discomfort [Recovering/Resolving]
  - Gingival pain [Unknown]
  - Drug dose omission [Unknown]
  - Oral contusion [Not Recovered/Not Resolved]

NARRATIVE: CASE EVENT DATE: 20180325
